FAERS Safety Report 4456010-1 (Version None)
Quarter: 2004Q3

REPORT INFORMATION
  Report Type: 
  Country: None (occurrence: None)
  Receive Date: 20040920
  Receipt Date: 20040913
  Transmission Date: 20050211
  Serious: Yes (Death, Life-Threatening, Hospitalization)
  Sender: FDA-Public Use
  Company Number: 2004-BP-07142RO

PATIENT
  Age: 33 Year
  Sex: Female
  Weight: 77 kg

DRUGS (5)
  1. PREDNISONE TAB [Suspect]
     Indication: NON-HODGKIN'S LYMPHOMA
     Dosage: 60 MG (DAYS 1-5 OF 21 DAY CYCLE)
     Dates: start: 20040615, end: 20040710
  2. GEMCITABINE (GEMCITABINE) [Suspect]
     Indication: NON-HODGKIN'S LYMPHOMA
     Dosage: 1600 MG (DAYS 1 AND 8 OF 21 DAY CYCLE)
     Dates: start: 20040615, end: 20040713
  3. CYCLOPHOSPHAMIDE [Suspect]
     Indication: NON-HODGKIN'S LYMPHOMA
     Dosage: 750 MG/M2 (DAY 1 OF 21 DAY CYCLE)
     Dates: start: 20040615, end: 20040706
  4. VINCRISTINE [Suspect]
     Indication: NON-HODGKIN'S LYMPHOMA
     Dosage: 1.4 MG/M2 (DAY 1 OF 21 DAY CYCLE)
     Dates: start: 20040615, end: 20040706
  5. DOXORUBICIN (DOXORUBICIN) [Suspect]
     Indication: NON-HODGKIN'S LYMPHOMA
     Dosage: 50 MG/M2 (DAY 1 OF 21 DAY CYCLE)
     Dates: start: 20040615, end: 20040706

REACTIONS (16)
  - BENIGN OVARIAN TUMOUR [None]
  - CARDIAC ARREST [None]
  - FEBRILE NEUTROPENIA [None]
  - HAEMATOCRIT DECREASED [None]
  - HAEMOGLOBIN DECREASED [None]
  - HYPOXIA [None]
  - INFECTION [None]
  - INTERSTITIAL LUNG DISEASE [None]
  - LYMPHADENOPATHY [None]
  - MEDIASTINUM NEOPLASM [None]
  - PANCREATITIS [None]
  - PLATELET COUNT ABNORMAL [None]
  - PNEUMONIA [None]
  - PULMONARY OEDEMA [None]
  - RED BLOOD CELL COUNT DECREASED [None]
  - THERAPEUTIC AGENT TOXICITY [None]
